FAERS Safety Report 25690761 (Version 1)
Quarter: 2025Q3

REPORT INFORMATION
  Report Type: Spontaneous
  Country: US (occurrence: None)
  Receive Date: 20250817
  Receipt Date: 20250817
  Transmission Date: 20251020
  Serious: Yes (Disabling)
  Sender: FDA-CTU
  Company Number: None

PATIENT
  Age: 39 Year
  Sex: Female
  Weight: 64.35 kg

DRUGS (7)
  1. QELBREE [Suspect]
     Active Substance: VILOXAZINE HYDROCHLORIDE
     Indication: Attention deficit hyperactivity disorder
     Route: 048
     Dates: start: 20240626, end: 20250417
  2. Bupropion 150mg (since Jan 23) [Concomitant]
  3. trazodone 50mg (since Jan 23) [Concomitant]
  4. propanolol 10mg as needed (Since Jun 24 - did not take any from Aug [Concomitant]
  5. Protonix 40mg and 80mg (oct 1, 2024 through apr 17, 2025 [Concomitant]
  6. famotidine 20mg (end of March ^25 through April ^25) [Concomitant]
  7. vyvanse 10mg (since April 18, 2025 - replacement/taken after Qelbree) [Concomitant]

REACTIONS (5)
  - Reflux laryngitis [None]
  - Speech disorder [None]
  - Symptom recurrence [None]
  - Reflux laryngitis [None]
  - Gastrooesophageal reflux disease [None]

NARRATIVE: CASE EVENT DATE: 20240706
